FAERS Safety Report 9370079 (Version 6)
Quarter: 2015Q1

REPORT INFORMATION
  Report Type: Report from Study
  Country: US (occurrence: US)
  Receive Date: 20130626
  Receipt Date: 20150102
  Transmission Date: 20150721
  Serious: Yes (Hospitalization, Other)
  Sender: FDA-Public Use
  Company Number: PHEH2013US013604

PATIENT
  Sex: Female

DRUGS (4)
  1. SANDIMMUNE [Suspect]
     Active Substance: CYCLOSPORINE
     Indication: AUTOIMMUNE DISORDER
  2. PREDNISONE. [Concomitant]
     Active Substance: PREDNISONE
     Indication: PRODUCT USED FOR UNKNOWN INDICATION
     Dosage: UNK
     Route: 065
  3. SANDIMMUNE [Suspect]
     Active Substance: CYCLOSPORINE
     Indication: RENAL TRANSPLANT
     Dosage: 100 MG, BID
     Route: 048
     Dates: start: 198609
  4. SANDIMMUNE [Suspect]
     Active Substance: CYCLOSPORINE
     Indication: CHRONIC KIDNEY DISEASE
     Dosage: 175 MG (100 MG AM AND 75 MG PM)
     Route: 048

REACTIONS (6)
  - Musculoskeletal pain [Not Recovered/Not Resolved]
  - Sluggishness [Unknown]
  - Joint injury [Not Recovered/Not Resolved]
  - Atrial fibrillation [Unknown]
  - Skin cancer [Unknown]
  - Premature ageing [Unknown]
